FAERS Safety Report 8304108-X (Version None)
Quarter: 2012Q2

REPORT INFORMATION
  Report Type: 
  Country: None (occurrence: None)
  Receive Date: 20120423
  Receipt Date: 20120414
  Transmission Date: 20120825
  Serious: No
  Sender: FDA-Public Use
  Company Number: US-BAYER-2012-038786

PATIENT
  Age: 50 Year
  Sex: Male
  Weight: 77 kg

DRUGS (6)
  1. LAMICTAL [Concomitant]
  2. NEURONTIN [Concomitant]
  3. NAPROXEN (ALEVE) [Suspect]
     Indication: BACK PAIN
     Route: 048
  4. ALEVE (CAPLET) [Suspect]
  5. LITHIUM CARBONATE [Concomitant]
  6. WELLBUTRIN [Concomitant]

REACTIONS (7)
  - NO ADVERSE EVENT [None]
  - MUSCULOSKELETAL PAIN [None]
  - ABDOMINAL PAIN UPPER [None]
  - PAIN IN EXTREMITY [None]
  - HEADACHE [None]
  - BACK PAIN [None]
  - PAIN [None]
